FAERS Safety Report 15284580 (Version 1)
Quarter: 2018Q3

REPORT INFORMATION
  Report Type: Spontaneous
  Country: CN (occurrence: CN)
  Receive Date: 20180816
  Receipt Date: 20180816
  Transmission Date: 20181010
  Serious: Yes (Other)
  Sender: FDA-Public Use
  Company Number: CN-BRISTOL-MYERS SQUIBB COMPANY-BMS-2018-073871

PATIENT
  Age: 53 Year
  Sex: Female
  Weight: 45 kg

DRUGS (2)
  1. OPDIVO [Suspect]
     Active Substance: NIVOLUMAB
     Indication: MALIGNANT MELANOMA
     Dosage: 140 MG, UNK
     Route: 042
     Dates: start: 2018, end: 20180725
  2. YERVOY [Suspect]
     Active Substance: IPILIMUMAB
     Indication: MALIGNANT MELANOMA
     Dosage: 50 MG, UNK
     Route: 042
     Dates: start: 2018, end: 20180726

REACTIONS (6)
  - Hypothyroidism [Unknown]
  - Myocardial necrosis marker increased [Unknown]
  - Off label use [Unknown]
  - Malignant neoplasm progression [Unknown]
  - Hyperthyroidism [Unknown]
  - Diplopia [Unknown]

NARRATIVE: CASE EVENT DATE: 20180730
